FAERS Safety Report 5567262-9 (Version None)
Quarter: 2007Q4

REPORT INFORMATION
  Report Type: 
  Country: None (occurrence: None)
  Receive Date: 20071219
  Receipt Date: 20071206
  Transmission Date: 20080405
  Serious: Yes (Disabling)
  Sender: FDA-Public Use
  Company Number: GB-RANBAXY-2007RR-11942

PATIENT

DRUGS (3)
  1. TERBINAFINE HCL [Suspect]
     Indication: ONYCHOMYCOSIS
     Dosage: 250 MG, QD
     Route: 048
     Dates: start: 20070227, end: 20070401
  2. BENDROFLUMETHIAZIDE [Concomitant]
     Indication: HYPERTENSION
     Dosage: 2.5 MG, UNK
     Route: 048
     Dates: start: 20070101
  3. LISINOPRIL [Concomitant]
     Indication: HYPERTENSION
     Dosage: 5 MG, UNK
     Route: 048
     Dates: start: 19991001, end: 20070619

REACTIONS (4)
  - ANOREXIA [None]
  - DYSGEUSIA [None]
  - PHARYNGOLARYNGEAL PAIN [None]
  - WEIGHT DECREASED [None]
